FAERS Safety Report 4951531-7 (Version None)
Quarter: 2006Q1

REPORT INFORMATION
  Report Type: 
  Country: None (occurrence: None)
  Receive Date: 20060317
  Receipt Date: 20060228
  Transmission Date: 20060701
  Serious: Yes (Hospitalization)
  Sender: FDA-Public Use
  Company Number: 6021089

PATIENT
  Age: 70 Year
  Sex: Female

DRUGS (8)
  1. ATENOLOL [Suspect]
     Indication: ARRHYTHMIA
     Dosage: 50,000 MG (50 MG, 1 IN 1 D); ORAL
     Route: 048
     Dates: start: 19990401, end: 20010103
  2. SERETIDE (FLUTICASONE PROPIONATE, SALMETEROL XINAFOATE) [Suspect]
     Dosage: ORAL
     Route: 048
     Dates: start: 20010105
  3. BRICANYL [Suspect]
     Indication: DRUG USE FOR UNKNOWN INDICATION
     Dates: start: 20010105
  4. FLUTICASONE PROPIONATE [Suspect]
     Dates: start: 20010105
  5. DECASONE [Suspect]
     Dates: start: 20010105
  6. LOSEC [Concomitant]
  7. PREMARIN [Concomitant]
  8. PROPULSID [Concomitant]

REACTIONS (3)
  - ANAEMIA [None]
  - ANTINUCLEAR ANTIBODY POSITIVE [None]
  - COUGH [None]
